FAERS Safety Report 8973774 (Version 1)
Quarter: 2012Q4

REPORT INFORMATION
  Report Type: 
  Country: US (occurrence: US)
  Receive Date: 20121218
  Receipt Date: 20121218
  Transmission Date: 20130627
  Serious: No
  Sender: FDA-Public Use
  Company Number: US-BRISTOL-MYERS SQUIBB COMPANY-16411704

PATIENT
  Age: 9 Year
  Sex: Female

DRUGS (2)
  1. ABILIFY [Suspect]
     Dosage: Abilify 5 or 10 mg
  2. KLONOPIN [Suspect]

REACTIONS (1)
  - Enuresis [Unknown]
